FAERS Safety Report 6587977-3 (Version None)
Quarter: 2010Q1

REPORT INFORMATION
  Report Type: 
  Country: None (occurrence: None)
  Receive Date: 20100218
  Receipt Date: 20100213
  Transmission Date: 20100710
  Serious: Yes (Hospitalization, Other)
  Sender: FDA-Public Use
  Company Number: JO-ASTRAZENECA-2010SE06504

PATIENT
  Age: 73 Year
  Sex: Male
  Weight: 80 kg

DRUGS (7)
  1. MERONEM [Suspect]
     Indication: SEPTIC SHOCK
     Route: 042
     Dates: start: 20100201, end: 20100203
  2. DOPAMINE HYDROCHLORIDE [Concomitant]
     Indication: SEPTIC SHOCK
     Route: 042
     Dates: start: 20100201, end: 20100204
  3. NORADRENALINE [Concomitant]
     Indication: SEPTIC SHOCK
     Route: 042
     Dates: start: 20100201, end: 20100202
  4. NEXIUM [Concomitant]
     Indication: ULCER
     Route: 042
     Dates: start: 20100201, end: 20100208
  5. LACTULOSE [Concomitant]
     Indication: BOWEL MOVEMENT IRREGULARITY
     Route: 048
     Dates: start: 20100201, end: 20100208
  6. FRUSEMIDE [Concomitant]
     Indication: POLYURIA
     Route: 042
     Dates: start: 20100201, end: 20100207
  7. ALBUMIN (HUMAN) [Concomitant]
     Indication: SUPPLEMENTATION THERAPY
     Route: 042
     Dates: start: 20100202, end: 20100204

REACTIONS (1)
  - THROMBOCYTOPENIA [None]
